FAERS Safety Report 9548983 (Version 1)
Quarter: 2013Q3

REPORT INFORMATION
  Report Type: Spontaneous
  Country: US (occurrence: US)
  Receive Date: 20130924
  Receipt Date: 20130924
  Transmission Date: 20140515
  Serious: No
  Sender: FDA-Public Use
  Company Number: US-BAYER-2013-114839

PATIENT
  Sex: Male

DRUGS (2)
  1. ALEVE TABLET [Suspect]
     Dosage: 1 DF, QD
     Route: 048
  2. HYDROCODONE [HYDROCODONE] [Concomitant]

REACTIONS (3)
  - Pollakiuria [None]
  - Incorrect drug administration duration [None]
  - Drug effect decreased [None]
